FAERS Safety Report 4421045-1 (Version None)
Quarter: 2004Q3

REPORT INFORMATION
  Report Type: 
  Country: None (occurrence: None)
  Receive Date: 20040809
  Receipt Date: 20040804
  Transmission Date: 20050211
  Serious: Yes (Disabling)
  Sender: FDA-Public Use
  Company Number: PHEH2004US08436

PATIENT
  Age: 31 Year
  Sex: Male

DRUGS (1)
  1. LAMISIL [Suspect]
     Indication: NAIL TINEA
     Dosage: 250 MG, QD
     Route: 048
     Dates: start: 20040625, end: 20040716

REACTIONS (8)
  - CHILLS [None]
  - DYSPNOEA [None]
  - OEDEMA [None]
  - PAIN [None]
  - PYREXIA [None]
  - RASH GENERALISED [None]
  - STREPTOCOCCAL SEROLOGY POSITIVE [None]
  - SWELLING FACE [None]
